FAERS Safety Report 15681789 (Version 1)
Quarter: 2018Q4

REPORT INFORMATION
  Report Type: Spontaneous
  Country: NL (occurrence: NL)
  Receive Date: 20181203
  Receipt Date: 20181203
  Transmission Date: 20190205
  Serious: Yes (Other)
  Sender: FDA-Public Use
  Company Number: NL-TEVA-2018-NL-981043

PATIENT
  Age: 51 Year
  Sex: Male
  Weight: 121 kg

DRUGS (3)
  1. FLIXOTIDE DISKUS 500 MCG [Concomitant]
     Dosage: 2 DD 1
  2. SALBUTAMOL AEROSOL, 100 ?G/DOSIS (MICROGRAM PER DOSIS) [Suspect]
     Active Substance: ALBUTEROL
     Indication: ASTHMA
     Dosage: IF NECESSARY, 1 TO 4 TIMES DAILY 1 INHALATION, MAX 8 PER DAY
     Route: 065
     Dates: start: 20181015, end: 20181016
  3. DEPAKINE CHR GRAN MGA 750 MG [Concomitant]
     Dosage: 2 DD 1 BAG

REACTIONS (1)
  - Epilepsy [Recovered/Resolved]

NARRATIVE: CASE EVENT DATE: 20181016
